FAERS Safety Report 9178234 (Version 2)
Quarter: 2013Q2

REPORT INFORMATION
  Report Type: Spontaneous
  Country: US (occurrence: US)
  Receive Date: 20130321
  Receipt Date: 20130402
  Transmission Date: 20140414
  Serious: Yes (Hospitalization, Other)
  Sender: FDA-Public Use
  Company Number: US-UCBSA-081081

PATIENT
  Age: 67 Year
  Sex: Female
  Weight: 43.09 kg

DRUGS (2)
  1. CIMZIA [Suspect]
     Indication: CROHN^S DISEASE
     Dosage: ON HOLD
     Dates: start: 2008, end: 201302
  2. LIALDA [Concomitant]
     Indication: CROHN^S DISEASE
     Dosage: 4 PILLS A DAY
     Dates: start: 201203

REACTIONS (7)
  - Hip fracture [Recovered/Resolved]
  - Rash [Not Recovered/Not Resolved]
  - Skin swelling [Not Recovered/Not Resolved]
  - Blood potassium decreased [Not Recovered/Not Resolved]
  - Pruritus [Not Recovered/Not Resolved]
  - Wound [Recovering/Resolving]
  - Fall [Recovered/Resolved]
